FAERS Safety Report 21514767 (Version 3)
Quarter: 2022Q4

REPORT INFORMATION
  Report Type: Report from Study
  Country: CN (occurrence: CN)
  Receive Date: 20221027
  Receipt Date: 20221121
  Transmission Date: 20230112
  Serious: Yes (Hospitalization, Other)
  Sender: FDA-Public Use
  Company Number: CN-TAKEDA-2022TUS077892

PATIENT
  Age: 54 Year
  Sex: Female
  Weight: 53 kg

DRUGS (9)
  1. VEDOLIZUMAB [Suspect]
     Active Substance: VEDOLIZUMAB
     Indication: Colitis ulcerative
     Dosage: 300 MILLIGRAM
     Route: 042
     Dates: start: 20220817
  2. MESALAMINE [Concomitant]
     Active Substance: MESALAMINE
     Indication: Inflammatory bowel disease
     Dosage: 1000 MILLIGRAM, QID
     Route: 048
     Dates: start: 20220714
  3. Compound glutamine [Concomitant]
     Indication: Dysbiosis
     Dosage: UNK UNK, TID
     Route: 048
     Dates: start: 20220714
  4. BIFIDOBACTERIUM BIFIDUM [Concomitant]
     Active Substance: BIFIDOBACTERIUM BIFIDUM
     Indication: Dysbiosis
     Dosage: 420 MILLIGRAM, BID
     Route: 048
     Dates: start: 20220714
  5. URSODIOL [Concomitant]
     Active Substance: URSODIOL
     Indication: Liver disorder
     Dosage: 250 MILLIGRAM, TID
     Route: 048
     Dates: start: 20220817
  6. Sheng xue bao [Concomitant]
     Indication: Liver disorder
     Dosage: 15 MILLILITER, TID
     Route: 048
     Dates: start: 20220817
  7. BICYCLOL [Concomitant]
     Active Substance: BICYCLOL
     Indication: Liver disorder
     Dosage: 50 MILLIGRAM, BID
     Route: 048
     Dates: start: 20220817
  8. MAGNESIUM ISOGLYCYRRHIZINATE [Concomitant]
     Active Substance: MAGNESIUM ISOGLYCYRRHIZINATE
     Indication: Antiinflammatory therapy
     Dosage: 150 MILLIGRAM, QD
     Dates: start: 20221008, end: 20221014
  9. MAGNESIUM ISOGLYCYRRHIZINATE [Concomitant]
     Active Substance: MAGNESIUM ISOGLYCYRRHIZINATE
     Indication: Liver disorder

REACTIONS (1)
  - Hepatic failure [Recovering/Resolving]

NARRATIVE: CASE EVENT DATE: 20221008
